FAERS Safety Report 8211085-9 (Version None)
Quarter: 2012Q1

REPORT INFORMATION
  Report Type: 
  Country: None (occurrence: None)
  Receive Date: 20120315
  Receipt Date: 20120313
  Transmission Date: 20120608
  Serious: Yes (Other)
  Sender: FDA-Public Use
  Company Number: US-BAYER-2012-025021

PATIENT
  Age: 74 Year
  Sex: Male

DRUGS (1)
  1. ULTRAVIST 150 [Suspect]
     Dosage: 75 ML, UNK
     Route: 042
     Dates: start: 20120312, end: 20120312

REACTIONS (3)
  - URTICARIA [None]
  - LIP SWELLING [None]
  - PHARYNGEAL OEDEMA [None]
